FAERS Safety Report 4704376-7 (Version None)
Quarter: 2005Q2

REPORT INFORMATION
  Report Type: 
  Country: None (occurrence: None)
  Receive Date: 20050630
  Receipt Date: 20050202
  Transmission Date: 20051028
  Serious: Yes (Hospitalization)
  Sender: FDA-Public Use
  Company Number: US-GLAXOSMITHKLINE-A0544395A

PATIENT
  Age: 67 Year
  Sex: Female

DRUGS (2)
  1. TOPOTECAN [Suspect]
     Indication: OVARIAN CANCER
     Dosage: 2.13MG PER DAY
     Route: 042
     Dates: start: 20050119, end: 20050121
  2. CARBOPLATIN [Suspect]
     Indication: OVARIAN CANCER
     Dosage: 366MG CYCLIC
     Route: 042
     Dates: start: 20050121, end: 20050121

REACTIONS (3)
  - ANAEMIA [None]
  - PALPITATIONS [None]
  - SINUS TACHYCARDIA [None]
